FAERS Safety Report 8303465-8 (Version None)
Quarter: 2012Q2

REPORT INFORMATION
  Report Type: 
  Country: None (occurrence: None)
  Receive Date: 20120423
  Receipt Date: 20120417
  Transmission Date: 20120825
  Serious: No
  Sender: FDA-Public Use
  Company Number: US-PFIZER INC-2012096180

PATIENT
  Sex: Female
  Weight: 52.154 kg

DRUGS (5)
  1. PREMARIN [Suspect]
     Indication: ATROPHIC VULVOVAGINITIS
     Dosage: UNK, DAILY
  2. DESOXIMETASONE [Suspect]
     Indication: PRURITUS
     Dosage: UNK
  3. FLUOCINONIDE [Suspect]
     Indication: PRURITUS
     Dosage: UNK
  4. DESOXIMETASONE [Suspect]
     Indication: DRY SKIN
  5. FLUOCINONIDE [Suspect]
     Indication: DRY SKIN

REACTIONS (4)
  - DRUG INEFFECTIVE [None]
  - DRY SKIN [None]
  - DRUG ADMINISTRATION ERROR [None]
  - PRURITUS [None]
